FAERS Safety Report 7945048-5 (Version None)
Quarter: 2011Q4

REPORT INFORMATION
  Report Type: 
  Country: None (occurrence: None)
  Receive Date: 20111129
  Receipt Date: 20111117
  Transmission Date: 20120403
  Serious: Yes (Hospitalization, Other)
  Sender: FDA-Public Use
  Company Number: JP-CELGENEUS-087-50794-11110880

PATIENT
  Sex: Male
  Weight: 57 kg

DRUGS (12)
  1. VIDAZA [Suspect]
     Dosage: 75 MILLIGRAM/SQ. METER
     Route: 058
     Dates: start: 20110725, end: 20110731
  2. LEVOFLOXACIN [Concomitant]
     Dosage: 500 MILLIGRAM
     Route: 048
     Dates: start: 20110726
  3. OMEPRAZOLE [Concomitant]
     Dosage: 20 MILLIGRAM
     Route: 048
  4. VIDAZA [Suspect]
     Dosage: 75 MILLIGRAM/SQ. METER
     Route: 058
     Dates: start: 20110829, end: 20110904
  5. TIEPENEM [Concomitant]
     Dosage: 1 GRAM
     Route: 041
     Dates: start: 20110822, end: 20110829
  6. MEROPENEM [Concomitant]
     Dosage: 2 GRAM
     Route: 041
     Dates: end: 20110726
  7. ACETAMINOPHEN [Concomitant]
     Route: 048
  8. RESTAMIN [Concomitant]
     Route: 065
     Dates: start: 20110802
  9. SENNOSIDE [Concomitant]
     Dosage: 24 MILLIGRAM
     Route: 048
     Dates: end: 20110728
  10. MAGMITT [Concomitant]
     Dosage: 330 MILLIGRAM
     Route: 048
  11. MAXIPIME [Concomitant]
     Dosage: 4 GRAM
     Route: 048
     Dates: start: 20110810, end: 20110822
  12. FLUCONAZOLE [Concomitant]
     Dosage: 100 MILLIGRAM
     Route: 048

REACTIONS (4)
  - NEUTROPHIL COUNT DECREASED [None]
  - INJECTION SITE REACTION [None]
  - FEBRILE NEUTROPENIA [None]
  - HYPONATRAEMIA [None]
